FAERS Safety Report 17958233 (Version 3)
Quarter: 2021Q3

REPORT INFORMATION
  Report Type: Spontaneous
  Country: FR (occurrence: FR)
  Receive Date: 20200629
  Receipt Date: 20210816
  Transmission Date: 20211014
  Serious: Yes (Hospitalization, Other)
  Sender: FDA-Public Use
  Company Number: NVSC2020FR181697

PATIENT
  Age: 74 Year
  Sex: Female
  Weight: 54 kg

DRUGS (20)
  1. TACROLIMUS. [Suspect]
     Active Substance: TACROLIMUS
     Indication: PROPHYLAXIS
     Dosage: 15 MG, QD
     Route: 048
     Dates: start: 20170501, end: 20170626
  2. TACROLIMUS. [Suspect]
     Active Substance: TACROLIMUS
     Dosage: 11 MG, QD
     Route: 048
     Dates: start: 20170317
  3. TACROLIMUS. [Suspect]
     Active Substance: TACROLIMUS
     Dosage: 5 MG, QD
     Route: 048
     Dates: start: 20180806
  4. CORTANCYL [Concomitant]
     Active Substance: PREDNISONE
     Dosage: 10 UNKNOWN UNITS, ONCE DAILY
     Route: 065
     Dates: start: 20170314, end: 20170328
  5. TACROLIMUS. [Suspect]
     Active Substance: TACROLIMUS
     Dosage: 3 MG, QD
     Route: 048
     Dates: start: 20180712
  6. TACROLIMUS. [Suspect]
     Active Substance: TACROLIMUS
     Dosage: 9 MG, QD
     Route: 048
     Dates: start: 20190827
  7. TACROLIMUS. [Suspect]
     Active Substance: TACROLIMUS
     Dosage: 13 MG, QD
     Route: 048
     Dates: start: 20170321
  8. TACROLIMUS. [Suspect]
     Active Substance: TACROLIMUS
     Dosage: 7 MG, QD
     Route: 048
     Dates: start: 20180814
  9. TACROLIMUS. [Suspect]
     Active Substance: TACROLIMUS
     Dosage: 10 MG, QD
     Route: 048
     Dates: start: 20170627
  10. CORTANCYL [Concomitant]
     Active Substance: PREDNISONE
     Indication: IMMUNOSUPPRESSION
     Dosage: 5 UNKNOWN UNITS, ONCE DAILY
     Route: 065
     Dates: start: 20170329, end: 20191031
  11. CORTANCYL [Concomitant]
     Active Substance: PREDNISONE
     Dosage: 20 UNKNOWN UNITS, ONCE DAILY
     Route: 065
     Dates: start: 20170218, end: 20170227
  12. CELLCEPT [Concomitant]
     Active Substance: MYCOPHENOLATE MOFETIL\MYCOPHENOLATE MOFETIL HYDROCHLORIDE
     Dosage: 1000 UNKNOWN UNITS, ONCE DAILY
     Route: 065
     Dates: start: 20180807
  13. TACROLIMUS. [Suspect]
     Active Substance: TACROLIMUS
     Indication: RENAL TRANSPLANT
     Dosage: 4 G
     Route: 042
     Dates: start: 20180314
  14. CELLCEPT [Concomitant]
     Active Substance: MYCOPHENOLATE MOFETIL\MYCOPHENOLATE MOFETIL HYDROCHLORIDE
     Indication: IMMUNOSUPPRESSION
     Dosage: 1500 UNKNOWN UNITS, ONCE DAILY
     Route: 065
     Dates: start: 20170628, end: 20180806
  15. CELLCEPT [Concomitant]
     Active Substance: MYCOPHENOLATE MOFETIL\MYCOPHENOLATE MOFETIL HYDROCHLORIDE
     Dosage: 2000 UNKNOWN UNITS, ONCE DAILY
     Route: 065
     Dates: start: 20170220, end: 20170227
  16. TACROLIMUS. [Suspect]
     Active Substance: TACROLIMUS
     Dosage: 8 MG, QD
     Route: 048
     Dates: start: 20180927
  17. CORTANCYL [Concomitant]
     Active Substance: PREDNISONE
     Dosage: 15 UNKNOWN UNITS, ONCE DAILY
     Route: 065
     Dates: start: 20170228, end: 20170313
  18. CELLCEPT [Concomitant]
     Active Substance: MYCOPHENOLATE MOFETIL\MYCOPHENOLATE MOFETIL HYDROCHLORIDE
     Dosage: 3000 UNKNOWN UNITS, ONCE DAILY
     Route: 065
     Dates: start: 20170218, end: 20170219
  19. TACROLIMUS. [Suspect]
     Active Substance: TACROLIMUS
     Dosage: 13 MG, QD
     Route: 048
     Dates: start: 20170218
  20. CELLCEPT [Concomitant]
     Active Substance: MYCOPHENOLATE MOFETIL\MYCOPHENOLATE MOFETIL HYDROCHLORIDE
     Dosage: 2.5 UNKNOWN UNITS, ONCE DAILY
     Route: 065
     Dates: start: 20191101

REACTIONS (2)
  - Pyelonephritis [Recovered/Resolved]
  - Pyelonephritis [Recovered/Resolved]

NARRATIVE: CASE EVENT DATE: 20170526
